FAERS Safety Report 8974161 (Version 1)
Quarter: 2012Q4

REPORT INFORMATION
  Report Type: Spontaneous
  Country: DK (occurrence: None)
  Receive Date: 20121213
  Receipt Date: 20121213
  Transmission Date: 20130627
  Serious: Yes (Hospitalization)
  Sender: FDA-Public Use
  Company Number: 2012MA013946

PATIENT
  Age: 33 Year
  Sex: Female

DRUGS (19)
  1. ACYCLOVIR [Suspect]
     Indication: COLD SORE (HERPETIC)
     Route: 048
     Dates: start: 20121103, end: 20121108
  2. CEFALEXIN [Suspect]
     Indication: IMPETIGO
     Route: 048
  3. BUSCOPAN [Concomitant]
  4. PROCHLORPERAZINE [Concomitant]
  5. MAXITROL [Concomitant]
  6. CANESTEN [Concomitant]
  7. PULMICORT [Concomitant]
  8. DUROGESIC DTRANS [Concomitant]
  9. INDOMETACIN [Concomitant]
  10. NUTRIZYM [Concomitant]
  11. SUCRALFATE [Concomitant]
  12. VENTOLIN [Concomitant]
  13. ESOMEPRAZOLE [Concomitant]
  14. CALCEOS [Concomitant]
  15. ETANERCEPT [Concomitant]
  16. TYLEX [Concomitant]
  17. SYSTANE [Concomitant]
  18. DUROGESIC DTRANS [Concomitant]
  19. STEROIDS NOS [Concomitant]

REACTIONS (1)
  - Pancreatitis [None]
